FAERS Safety Report 5715388-9 (Version None)
Quarter: 2008Q2

REPORT INFORMATION
  Report Type: 
  Country: None (occurrence: None)
  Receive Date: 20080422
  Receipt Date: 20080414
  Transmission Date: 20081010
  Serious: Yes (Hospitalization, Other)
  Sender: FDA-Public Use
  Company Number: 2008SP004143

PATIENT
  Age: 53 Year
  Sex: Female
  Weight: 62.7 kg

DRUGS (16)
  1. PEG-INTRON [Suspect]
     Indication: HEPATITIS C
     Dosage: 80 MCG; SC
     Route: 058
     Dates: start: 20070912, end: 20080319
  2. REBETOL [Suspect]
     Indication: HEPATITIS C
     Dosage: 800 MG; PO
     Route: 048
     Dates: start: 20070912, end: 20080319
  3. DOXYCYCLINE [Concomitant]
  4. BACTRIM [Concomitant]
  5. NAPROSYN [Concomitant]
  6. NORVASC [Concomitant]
  7. PLAQUENIL [Concomitant]
  8. LISINOPRIL [Concomitant]
  9. BLINDED PEGINTERFERON ALFA-2B (S-P) [Suspect]
     Indication: HEPATITIS C
     Dosage: 313 MG; IV
     Route: 042
     Dates: start: 20070912, end: 20080213
  10. FISH OIL [Concomitant]
  11. GLUCOTROL [Concomitant]
  12. DARVOCET-N 100 [Concomitant]
  13. RESTORIL [Concomitant]
  14. LORTAB [Concomitant]
  15. PHENADOZ [Concomitant]
  16. PRILOSEC [Concomitant]

REACTIONS (22)
  - ABSCESS [None]
  - ANAEMIA [None]
  - ATELECTASIS [None]
  - CELLULITIS [None]
  - DEHYDRATION [None]
  - DRUG TOXICITY [None]
  - DYSPNOEA [None]
  - ERYTHEMA [None]
  - FIBROSIS [None]
  - GLOMERULONEPHRITIS [None]
  - HEPATITIS C [None]
  - HYPOGLYCAEMIA [None]
  - LOBAR PNEUMONIA [None]
  - NAUSEA [None]
  - ORAL INTAKE REDUCED [None]
  - PAIN [None]
  - PNEUMONIA [None]
  - RENAL FAILURE ACUTE [None]
  - RENAL TUBULAR NECROSIS [None]
  - SEPSIS [None]
  - STAPHYLOCOCCAL INFECTION [None]
  - VOMITING [None]
